FAERS Safety Report 12291010 (Version 1)
Quarter: 2016Q2

REPORT INFORMATION
  Report Type: Spontaneous
  Country: US (occurrence: US)
  Receive Date: 20160421
  Receipt Date: 20160421
  Transmission Date: 20160815
  Serious: No
  Sender: FDA-Public Use
  Company Number: US-PFIZER INC-2016188442

PATIENT
  Sex: Female

DRUGS (1)
  1. ADVIL [Suspect]
     Active Substance: IBUPROFEN
     Indication: MENSTRUAL DISORDER
     Dosage: UNK

REACTIONS (8)
  - Pain [Unknown]
  - Influenza [Unknown]
  - Oropharyngeal pain [Unknown]
  - Product use issue [Unknown]
  - Hyperhidrosis [Unknown]
  - Cough [Unknown]
  - Pyrexia [Unknown]
  - Nasal congestion [Unknown]
